FAERS Safety Report 4743977-7 (Version None)
Quarter: 2005Q3

REPORT INFORMATION
  Report Type: 
  Country: None (occurrence: None)
  Receive Date: 20050812
  Receipt Date: 20050628
  Transmission Date: 20060218
  Serious: Yes (Hospitalization, Other)
  Sender: FDA-Public Use
  Company Number: US-BRISTOL-MYERS SQUIBB COMPANY-13017256

PATIENT
  Age: 48 Year
  Sex: Male

DRUGS (3)
  1. KENALOG-40 [Suspect]
     Indication: EPIDURAL ANAESTHESIA
     Route: 008
     Dates: start: 20050622, end: 20050622
  2. LACTATE [Concomitant]
     Route: 042
  3. OMNIPAQUE 140 [Concomitant]
     Route: 008

REACTIONS (1)
  - INFECTION [None]
